FAERS Safety Report 15183352 (Version 2)
Quarter: 2018Q3

REPORT INFORMATION
  Report Type: Spontaneous
  Country: US (occurrence: US)
  Receive Date: 20180723
  Receipt Date: 20180727
  Transmission Date: 20181010
  Serious: Yes (Death)
  Sender: FDA-Public Use
  Company Number: US-PFIZER INC-2018293877

PATIENT
  Age: 6 Year
  Weight: 21.8 kg

DRUGS (4)
  1. AMINOPHYLLINE. [Suspect]
     Active Substance: AMINOPHYLLINE
     Indication: ASTHMA
     Dosage: 1 DF (3 3/4 GRAINS), EVERY 4 HRS
     Route: 054
  2. AMINOPHYLLINE. [Concomitant]
     Active Substance: AMINOPHYLLINE
     Indication: ASTHMA
     Dosage: 0.25 MG (2 GRAINS), UNK (FOR 2 DOSES ON ADMISSION)
     Route: 042
  3. EPINEPHRINE. [Concomitant]
     Active Substance: EPINEPHRINE
     Indication: SYMPATHOMIMETIC EFFECT
     Dosage: 3 MINIMS FOR 2 DOSES BEFORE ADMISSION
  4. EPINEPHRINE. [Concomitant]
     Active Substance: EPINEPHRINE
     Dosage: 5 MINIMS (0.31 CC.) ON ADMISSION, REPEATED IN 4 HR

REACTIONS (8)
  - Delirium [Fatal]
  - Restlessness [Fatal]
  - Agitation [Fatal]
  - Hyperthermia [Fatal]
  - Dehydration [Fatal]
  - Haematemesis [Fatal]
  - Toxicity to various agents [Fatal]
  - Coma [Fatal]
